FAERS Safety Report 4493550-3 (Version None)
Quarter: 2004Q4

REPORT INFORMATION
  Report Type: 
  Country: None (occurrence: None)
  Receive Date: 20041102
  Receipt Date: 20041021
  Transmission Date: 20050328
  Serious: Yes (Hospitalization, Other)
  Sender: FDA-Public Use
  Company Number: 2004240759US

PATIENT
  Sex: Female
  Weight: 140.6 kg

DRUGS (3)
  1. CELEBREX [Suspect]
     Indication: OSTEOARTHRITIS
     Dosage: ORAL
     Route: 048
  2. PROZAC [Concomitant]
  3. ZYPREXA [Concomitant]

REACTIONS (6)
  - ASTHMA [None]
  - CARDIAC FAILURE CONGESTIVE [None]
  - MITRAL VALVE PROLAPSE [None]
  - OEDEMA PERIPHERAL [None]
  - TRANSIENT ISCHAEMIC ATTACK [None]
  - WEIGHT DECREASED [None]
